FAERS Safety Report 7367349-4 (Version None)
Quarter: 2011Q1

REPORT INFORMATION
  Report Type: 
  Country: None (occurrence: None)
  Receive Date: 20110311
  Receipt Date: 20110302
  Transmission Date: 20110831
  Serious: Yes (Other)
  Sender: FDA-Public Use
  Company Number: 2011SP009910

PATIENT
  Age: 59 Year
  Sex: Male

DRUGS (5)
  1. PROPAVAN [Concomitant]
  2. MIRTAZAPINE [Suspect]
     Indication: PRODUCT USED FOR UNKNOWN INDICATION
  3. DIAZEPAM [Concomitant]
  4. OXASCAND [Concomitant]
  5. PREDNISOLONE [Concomitant]

REACTIONS (7)
  - DIARRHOEA [None]
  - TREMOR [None]
  - PULMONARY HAEMATOMA [None]
  - WEIGHT DECREASED [None]
  - FALL [None]
  - TRAUMATIC LUNG INJURY [None]
  - FRACTURE [None]
